FAERS Safety Report 6784631-X (Version None)
Quarter: 2010Q2

REPORT INFORMATION
  Report Type: 
  Country: None (occurrence: None)
  Receive Date: 20100622
  Receipt Date: 20100620
  Transmission Date: 20101027
  Serious: Yes (Life-Threatening)
  Sender: FDA-Public Use
  Company Number: A0866395A

PATIENT
  Age: 21 Year
  Weight: 50 kg

DRUGS (1)
  1. AEROLIN [Suspect]
     Indication: DRUG USE FOR UNKNOWN INDICATION
     Dosage: 15TAB SINGLE DOSE
     Dates: start: 20100620, end: 20100620

REACTIONS (2)
  - OVERDOSE [None]
  - SUICIDE ATTEMPT [None]
